FAERS Safety Report 8987212 (Version 2)
Quarter: 2013Q1

REPORT INFORMATION
  Report Type: Spontaneous
  Country: US (occurrence: US)
  Receive Date: 20121227
  Receipt Date: 20130306
  Transmission Date: 20140127
  Serious: Yes (Hospitalization, Other)
  Sender: FDA-Public Use
  Company Number: US-ELI_LILLY_AND_COMPANY-US201212006213

PATIENT
  Age: 47 Year
  Sex: Male

DRUGS (1)
  1. HUMULIN 30% REGULAR, 70% NPH [Suspect]
     Indication: TYPE 2 DIABETES MELLITUS
     Dosage: 30 U, UNKNOWN
     Dates: end: 20121214

REACTIONS (7)
  - Blood glucose increased [Recovered/Resolved]
  - Hypertension [Recovering/Resolving]
  - Dyspnoea [Recovered/Resolved]
  - Tremor [Unknown]
  - Feeling cold [Recovered/Resolved]
  - Blood glucose increased [Unknown]
  - Drug ineffective [Recovered/Resolved]
